FAERS Safety Report 8127058-0 (Version None)
Quarter: 2012Q1

REPORT INFORMATION
  Report Type: 
  Country: None (occurrence: None)
  Receive Date: 20120210
  Receipt Date: 20120131
  Transmission Date: 20120608
  Serious: Yes (Hospitalization, Other)
  Sender: FDA-Public Use
  Company Number: US-JNJFOC-20120200591

PATIENT
  Sex: Male
  Weight: 84.37 kg

DRUGS (4)
  1. REMICADE [Suspect]
     Indication: CROHN'S DISEASE
     Route: 042
     Dates: start: 20090101, end: 20110801
  2. METOPROLOL [Concomitant]
     Indication: ARRHYTHMIA PROPHYLAXIS
     Route: 048
     Dates: start: 20080101
  3. KLOR-CON [Concomitant]
     Indication: MEDICAL DIET
     Route: 048
     Dates: start: 20060101
  4. POTASSIUM [Concomitant]
     Indication: MINERAL SUPPLEMENTATION
     Dosage: 2 TABLETS
     Route: 048
     Dates: start: 20080101

REACTIONS (15)
  - SWELLING [None]
  - PNEUMOTHORAX [None]
  - DEEP VEIN THROMBOSIS [None]
  - GASTRIC DISORDER [None]
  - DEPRESSION [None]
  - CROHN'S DISEASE [None]
  - RESPIRATORY DISORDER [None]
  - FALL [None]
  - MALAISE [None]
  - DIZZINESS [None]
  - HISTOPLASMOSIS [None]
  - TRAUMATIC LUNG INJURY [None]
  - PURULENCE [None]
  - ASTHENIA [None]
  - CONFUSIONAL STATE [None]
